FAERS Safety Report 18962801 (Version 3)
Quarter: 2021Q2

REPORT INFORMATION
  Report Type: Spontaneous
  Country: US (occurrence: US)
  Receive Date: 20210303
  Receipt Date: 20210524
  Transmission Date: 20210717
  Serious: No
  Sender: FDA-Public Use
  Company Number: US-APOTEX-2021AP002799

PATIENT
  Sex: Female

DRUGS (1)
  1. FENTANYL TRANSDERMAL SYSTEM [Suspect]
     Active Substance: FENTANYL
     Indication: ANALGESIC THERAPY
     Dosage: UNK (ONE EVERY 72 HOURS)
     Route: 062

REACTIONS (4)
  - Wrong technique in device usage process [Unknown]
  - Product adhesion issue [Unknown]
  - Device colour issue [Unknown]
  - Drug ineffective [Unknown]
